FAERS Safety Report 5194725-0 (Version None)
Quarter: 2006Q4

REPORT INFORMATION
  Report Type: 
  Country: None (occurrence: None)
  Receive Date: 20061229
  Receipt Date: 20061117
  Transmission Date: 20070319
  Serious: Yes (Hospitalization, Other)
  Sender: FDA-Public Use
  Company Number: PHHO2006JP19706

PATIENT
  Age: 69 Year
  Sex: Male
  Weight: 82 kg

DRUGS (7)
  1. DIOVAN [Suspect]
     Indication: HYPERTENSION
     Dosage: 40 MG, QD
     Route: 048
     Dates: start: 20030913
  2. LASIX [Concomitant]
     Indication: DIABETIC FOOT
  3. HUMALOG [Concomitant]
     Indication: DIABETES MELLITUS
  4. HUMACART-N [Concomitant]
     Indication: DIABETES MELLITUS
  5. GENTACIN [Concomitant]
     Indication: SKIN INFECTION
  6. ISODINE [Concomitant]
     Indication: SKIN INFECTION
  7. NORVASC [Concomitant]
     Indication: HYPERTENSION

REACTIONS (4)
  - BLOOD CREATINE INCREASED [None]
  - BLOOD UREA INCREASED [None]
  - DIABETIC RETINOPATHY [None]
  - RENAL FAILURE CHRONIC [None]
